FAERS Safety Report 6912615-7 (Version None)
Quarter: 2010Q3

REPORT INFORMATION
  Report Type: 
  Country: None (occurrence: None)
  Receive Date: 20100806
  Receipt Date: 20080818
  Transmission Date: 20110219
  Serious: No
  Sender: FDA-Public Use
  Company Number: US-PFIZER INC-2008060918

PATIENT
  Sex: Male
  Weight: 108.86 kg

DRUGS (2)
  1. DILANTIN [Suspect]
     Indication: CONVULSION
     Dates: start: 19700101
  2. PHENOBARBITAL [Concomitant]

REACTIONS (6)
  - CHEST PAIN [None]
  - DYSPNOEA [None]
  - FATIGUE [None]
  - FEELING ABNORMAL [None]
  - INSOMNIA [None]
  - TREMOR [None]
